FAERS Safety Report 7050261-8 (Version None)
Quarter: 2010Q4

REPORT INFORMATION
  Report Type: 
  Country: None (occurrence: None)
  Receive Date: 20101013
  Receipt Date: 20101001
  Transmission Date: 20110411
  Serious: Yes (Other)
  Sender: FDA-Public Use
  Company Number: 2010AP001957

PATIENT
  Age: 49 Year
  Sex: Female

DRUGS (6)
  1. AMISULPRIDE (AMISULPRIDE) [Suspect]
     Indication: SCHIZOPHRENIA
  2. LAMOTRIGINE [Suspect]
     Indication: SCHIZOPHRENIA
  3. PAROXETINE HCL [Suspect]
     Indication: DEPRESSION
  4. RAMIPRIL [Suspect]
     Indication: BLOOD PRESSURE
  5. CLOZARIL [Suspect]
     Dosage: PO
     Dates: start: 20050207
  6. CLOZAPINE [Concomitant]

REACTIONS (4)
  - BREAST ABSCESS [None]
  - BREAST CANCER [None]
  - METASTASES TO SPINE [None]
  - PLATELET COUNT DECREASED [None]
